FAERS Safety Report 17461709 (Version 1)
Quarter: 2020Q1

REPORT INFORMATION
  Report Type: Report from Study
  Country: CA (occurrence: CA)
  Receive Date: 20200226
  Receipt Date: 20200226
  Transmission Date: 20200409
  Serious: Yes (Life-Threatening, Hospitalization, Other)
  Sender: FDA-Public Use
  Company Number: CA-MYLANLABS-2019M1126485

PATIENT
  Age: 27 Year
  Sex: Male
  Weight: 110 kg

DRUGS (6)
  1. CLOZAPINE. [Suspect]
     Active Substance: CLOZAPINE
     Dosage: 50 MG 8 HOURS
     Route: 048
  2. CLOZAPINE. [Suspect]
     Active Substance: CLOZAPINE
     Dosage: 125 MILLIGRAM,  AT BEDTIME
     Route: 048
     Dates: end: 20191204
  3. SOLIAN [Concomitant]
     Active Substance: AMISULPRIDE
     Dosage: 200 MILLIGRAM, BID
     Route: 048
     Dates: end: 20191204
  4. ABILIFY MAINTENA [Concomitant]
     Active Substance: ARIPIPRAZOLE
     Dosage: 400 MILLIGRAM, 28D CYCLE
     Route: 030
     Dates: start: 20190328
  5. LAX-A-DAY [Concomitant]
     Dosage: 17 GRAM, AT BEDTIME
  6. CLOZAPINE. [Suspect]
     Active Substance: CLOZAPINE
     Indication: SCHIZOPHRENIA
     Dosage: 12.5 MG WITH INCREAMENT OF 25 MG EVERY 3-4 DAYS
     Route: 048
     Dates: start: 20191113

REACTIONS (7)
  - Abdominal pain [Recovered/Resolved]
  - Vomiting [Unknown]
  - Myocarditis [Unknown]
  - Headache [Unknown]
  - Heart rate increased [Unknown]
  - Cough [Unknown]
  - Blood pressure increased [Unknown]

NARRATIVE: CASE EVENT DATE: 201912
